FAERS Safety Report 24870643 (Version 1)
Quarter: 2025Q1

REPORT INFORMATION
  Report Type: Spontaneous
  Country: HU (occurrence: HU)
  Receive Date: 20250121
  Receipt Date: 20250121
  Transmission Date: 20250408
  Serious: Yes (Other)
  Sender: RANBAXY
  Company Number: HU-SUN PHARMACEUTICAL INDUSTRIES LTD-2025R1-489401

PATIENT
  Age: 49 Year
  Sex: Female

DRUGS (4)
  1. BORTEZOMIB [Suspect]
     Active Substance: BORTEZOMIB
     Indication: Thrombotic microangiopathy
     Route: 065
     Dates: start: 20220513
  2. DEXAMETHASONE [Suspect]
     Active Substance: DEXAMETHASONE
     Indication: Thrombotic microangiopathy
     Route: 065
     Dates: start: 20220513
  3. LENALIDOMIDE [Suspect]
     Active Substance: LENALIDOMIDE
     Indication: Transplant
     Route: 065
     Dates: start: 20200424, end: 20200703
  4. THALIDOMIDE [Suspect]
     Active Substance: THALIDOMIDE
     Indication: Transplant
     Route: 065

REACTIONS (3)
  - Disease progression [Unknown]
  - Plasma cell myeloma [Unknown]
  - Rash maculo-papular [Unknown]
